FAERS Safety Report 9055602 (Version 1)
Quarter: 2013Q1

REPORT INFORMATION
  Report Type: Spontaneous
  Country: US (occurrence: US)
  Receive Date: 20130206
  Receipt Date: 20130206
  Transmission Date: 20140127
  Serious: Yes (Hospitalization)
  Sender: FDA-Public Use
  Company Number: US-ELI_LILLY_AND_COMPANY-US201302000681

PATIENT
  Sex: Female

DRUGS (3)
  1. ADCIRCA [Suspect]
  2. LETAIRIS [Concomitant]
     Indication: PULMONARY ARTERIAL HYPERTENSION
     Dosage: 5 MG, QD
     Route: 048
     Dates: start: 20120323, end: 20120625
  3. REMODULIN [Concomitant]

REACTIONS (1)
  - Haemoglobin decreased [Unknown]
